FAERS Safety Report 10404111 (Version 2)
Quarter: 2014Q1

REPORT INFORMATION
  Report Type: Spontaneous
  Country: US (occurrence: None)
  Receive Date: 20130906
  Receipt Date: 20130906
  Transmission Date: 20141002
  Serious: No
  Sender: FDA-Public Use
  Company Number: 163-POMAL-13043747

PATIENT
  Age: 60 Year
  Sex: Female

DRUGS (2)
  1. POMALYST [Suspect]
     Indication: PLASMA CELL MYELOMA
     Dosage: 21 IN 28 D
     Route: 048
     Dates: start: 20130322
  2. LYRICA (PREGABALIN) [Concomitant]

REACTIONS (5)
  - Balance disorder [None]
  - Rash [None]
  - Tremor [None]
  - Dizziness [None]
  - Confusional state [None]
